FAERS Safety Report 15823945 (Version 3)
Quarter: 2019Q1

REPORT INFORMATION
  Report Type: Spontaneous
  Country: HU (occurrence: HU)
  Receive Date: 20190114
  Receipt Date: 20190319
  Transmission Date: 20190417
  Serious: Yes (Hospitalization)
  Sender: FDA-Public Use
  Company Number: PHHY2019HU003500

PATIENT
  Age: 91 Year
  Sex: Male
  Weight: 73 kg

DRUGS (9)
  1. PENTOXIFYLLINE. [Concomitant]
     Active Substance: PENTOXIFYLLINE
     Indication: PRODUCT USED FOR UNKNOWN INDICATION
     Dosage: UNK
     Route: 065
  2. ATORVASTATIN [Concomitant]
     Active Substance: ATORVASTATIN
     Indication: PRODUCT USED FOR UNKNOWN INDICATION
     Dosage: UNK
     Route: 065
  3. CLEXANE [Suspect]
     Active Substance: ENOXAPARIN SODIUM
     Indication: ATRIAL FIBRILLATION
     Dosage: 0.8 ML, Q12H
     Route: 058
     Dates: start: 20160703
  4. FUROSEMIDE. [Concomitant]
     Active Substance: FUROSEMIDE
     Indication: CARDIAC FAILURE
     Dosage: UNK
     Route: 065
  5. CLEXANE [Suspect]
     Active Substance: ENOXAPARIN SODIUM
     Dosage: 0.6 ML, Q12H
     Route: 058
     Dates: start: 20180426
  6. VALSARTAN. [Suspect]
     Active Substance: VALSARTAN
     Indication: CARDIAC FAILURE
     Dosage: UNK
     Route: 048
  7. XETER [Concomitant]
     Active Substance: ROSUVASTATIN CALCIUM
     Indication: PRODUCT USED FOR UNKNOWN INDICATION
     Dosage: UNK
     Route: 065
  8. RETAFYLLIN [Concomitant]
     Active Substance: THEOPHYLLINE
     Indication: PRODUCT USED FOR UNKNOWN INDICATION
     Dosage: UNK
     Route: 065
  9. PANTOPRAZOLE [Concomitant]
     Active Substance: PANTOPRAZOLE
     Indication: PRODUCT USED FOR UNKNOWN INDICATION
     Dosage: UNK
     Route: 065

REACTIONS (8)
  - Anaemia [Recovered/Resolved]
  - Oedema peripheral [Unknown]
  - Anaemia [Recovered/Resolved]
  - Anaemia [Recovered/Resolved]
  - Cardiac failure [Recovered/Resolved]
  - Colon neoplasm [Recovered/Resolved]
  - Dyspnoea [Unknown]
  - Asthenia [Unknown]

NARRATIVE: CASE EVENT DATE: 20180417
